FAERS Safety Report 8816246 (Version 1)
Quarter: 2012Q4

REPORT INFORMATION
  Report Type: 
  Country: US (occurrence: US)
  Receive Date: 20120930
  Receipt Date: 20120930
  Transmission Date: 20130627
  Serious: No
  Sender: FDA-Public Use
  Company Number: US-009507513-1208USA004820

PATIENT
  Sex: Female

DRUGS (3)
  1. PEG-INTRON [Suspect]
     Indication: HEPATITIS C
     Dosage: UNK
     Dates: start: 20120514
  2. VICTRELIS [Suspect]
     Indication: HEPATITIS C
     Dosage: UNK
     Dates: start: 20120613
  3. REBETOL [Suspect]
     Indication: HEPATITIS C
     Dosage: UNK
     Dates: start: 20120514

REACTIONS (14)
  - Visual impairment [Unknown]
  - Memory impairment [Unknown]
  - Balance disorder [Unknown]
  - Balance disorder [Unknown]
  - Cough [Unknown]
  - Increased upper airway secretion [Unknown]
  - Epistaxis [Unknown]
  - Asthenia [Unknown]
  - Fatigue [Unknown]
  - Dizziness [Unknown]
  - Abdominal pain upper [Unknown]
  - Depression [Unknown]
  - Decreased appetite [Unknown]
  - Dehydration [Unknown]
